FAERS Safety Report 9645632 (Version 1)
Quarter: 2013Q4

REPORT INFORMATION
  Report Type: Spontaneous
  Country: ZA (occurrence: ZA)
  Receive Date: 20131025
  Receipt Date: 20131025
  Transmission Date: 20140711
  Serious: Yes (Other)
  Sender: FDA-Public Use
  Company Number: ZA-MALLINCKRODT-T201304641

PATIENT
  Age: 42 Year
  Sex: Male

DRUGS (1)
  1. OPTIRAY [Suspect]
     Indication: ANGIOGRAM
     Dosage: 80 ML, SINGLE AT 7 MLS/SEC
     Route: 042

REACTIONS (3)
  - Air embolism [Unknown]
  - Drug administration error [Unknown]
  - No adverse event [Recovered/Resolved]
